FAERS Safety Report 16317369 (Version 1)
Quarter: 2019Q2

REPORT INFORMATION
  Report Type: Spontaneous
  Country: US (occurrence: US)
  Receive Date: 20190516
  Receipt Date: 20190516
  Transmission Date: 20190711
  Serious: Yes (Other)
  Sender: FDA-Public Use
  Company Number: US-SUN PHARMACEUTICAL INDUSTRIES LTD-2018US-186403

PATIENT
  Age: 57 Year
  Sex: Female

DRUGS (6)
  1. IBUPROFEN. [Suspect]
     Active Substance: IBUPROFEN
     Indication: PAIN
     Dosage: 800 MILLIGRAM, TID
     Route: 065
  2. VANCOMYCIN [Suspect]
     Active Substance: VANCOMYCIN
     Indication: KNEE ARTHROPLASTY
     Dosage: 9G
     Route: 065
  3. VANCOMYCIN [Suspect]
     Active Substance: VANCOMYCIN
     Dosage: GOAL TROUGH 15 TO 20 MG/L (THROUGH DAY 20), ADDITIONAL VANCOMYCIN DOSES ON DAYS 14, 18, AND 20
     Route: 065
  4. PIPERACILLIN/TAZOBACTAM [Suspect]
     Active Substance: PIPERACILLIN SODIUM\TAZOBACTAM SODIUM
     Indication: KNEE ARTHROPLASTY
     Dosage: 3.375 GRAM, TID
     Route: 042
  5. TOBRAMYCIN. [Suspect]
     Active Substance: TOBRAMYCIN
     Indication: KNEE ARTHROPLASTY
     Dosage: 7.2 G
     Route: 065
  6. GENTAMICIN. [Suspect]
     Active Substance: GENTAMICIN
     Indication: KNEE ARTHROPLASTY
     Dosage: 1.5 G
     Route: 065

REACTIONS (1)
  - Acute kidney injury [Recovered/Resolved]
